FAERS Safety Report 10104499 (Version 1)
Quarter: 2014Q2

REPORT INFORMATION
  Report Type: Report from Study
  Country: US (occurrence: US)
  Receive Date: 20140424
  Receipt Date: 20140424
  Transmission Date: 20141212
  Serious: Yes (Other)
  Sender: FDA-Public Use
  Company Number: US-ABBVIE-14P-163-1227333-00

PATIENT
  Sex: Female

DRUGS (4)
  1. LUPRON DEPOT [Suspect]
     Indication: ENDOMETRIOSIS
     Dates: start: 2012
  2. LUPRON DEPOT [Suspect]
     Dates: start: 201403
  3. ALLERGY MEDICATIONS [Concomitant]
     Indication: HYPERSENSITIVITY
  4. UNKNOWN ADD BACK THERAPY [Concomitant]
     Indication: PRODUCT USED FOR UNKNOWN INDICATION

REACTIONS (5)
  - Abdominal pain [Unknown]
  - Endometriosis [Unknown]
  - Hot flush [Recovered/Resolved]
  - Anger [Recovered/Resolved]
  - Hot flush [Not Recovered/Not Resolved]
